FAERS Safety Report 7945704-9 (Version None)
Quarter: 2011Q4

REPORT INFORMATION
  Report Type: 
  Country: None (occurrence: None)
  Receive Date: 20111129
  Receipt Date: 20110117
  Transmission Date: 20120403
  Serious: No
  Sender: FDA-Public Use
  Company Number: US-MYLANLABS-2011S1001277

PATIENT

DRUGS (2)
  1. CLONAZEPAM [Suspect]
     Indication: SLEEP DISORDER
     Dates: end: 20101201
  2. CLONAZEPAM [Suspect]
     Indication: ANXIETY DISORDER
     Dates: end: 20101201

REACTIONS (3)
  - DRUG INEFFECTIVE [None]
  - DRUG WITHDRAWAL SYNDROME [None]
  - PALPITATIONS [None]
